FAERS Safety Report 8468805-8 (Version None)
Quarter: 2012Q2

REPORT INFORMATION
  Report Type: 
  Country: None (occurrence: None)
  Receive Date: 20120626
  Receipt Date: 20120611
  Transmission Date: 20120825
  Serious: Yes (Hospitalization, Other)
  Sender: FDA-Public Use
  Company Number: FR-ROCHE-1077404

PATIENT
  Age: 43 Year
  Sex: Male

DRUGS (7)
  1. PEGASYS [Suspect]
     Indication: HEPATITIS C
     Dates: start: 20120211
  2. BOCEPREVIR [Suspect]
     Indication: HEPATITIS C
     Dates: start: 20120309
  3. ALDACTONE [Concomitant]
     Dates: start: 20091125
  4. COPEGUS [Suspect]
     Indication: HEPATITIS C
     Dates: start: 20120211
  5. NOROXIN [Concomitant]
     Indication: HYPERTENSION
     Dates: start: 20091125
  6. PANTOPRAZOLE SODIUM [Concomitant]
     Dates: start: 20091119
  7. PROPRANOLOL [Concomitant]
     Dates: start: 20091118

REACTIONS (2)
  - NEUTROPENIA [None]
  - OEDEMA PERIPHERAL [None]
